FAERS Safety Report 22333038 (Version 1)
Quarter: 2023Q2

REPORT INFORMATION
  Report Type: Spontaneous
  Country: US (occurrence: US)
  Receive Date: 20230517
  Receipt Date: 20230517
  Transmission Date: 20230722
  Serious: No
  Sender: FDA-Public Use
  Company Number: US-PFIZER INC-PV202300085269

PATIENT
  Age: 62 Year
  Sex: Female

DRUGS (3)
  1. SOLU-MEDROL [Suspect]
     Active Substance: METHYLPREDNISOLONE SODIUM SUCCINATE
     Dosage: UNK
     Route: 042
  2. PEPCID [Concomitant]
     Active Substance: FAMOTIDINE
     Indication: Dyspepsia
     Dosage: UNK
     Route: 042
  3. OCREVUS [Concomitant]
     Active Substance: OCRELIZUMAB
     Dosage: UNK

REACTIONS (2)
  - Dyspepsia [Recovered/Resolved]
  - Gait disturbance [Recovered/Resolved]
